FAERS Safety Report 5845789-X (Version None)
Quarter: 2008Q3

REPORT INFORMATION
  Report Type: 
  Country: None (occurrence: None)
  Receive Date: 20080731
  Receipt Date: 20080527
  Transmission Date: 20090109
  Serious: No
  Sender: FDA-Public Use
  Company Number: US200805006002

PATIENT
  Age: 68 Year
  Sex: Female

DRUGS (2)
  1. BYETTA [Suspect]
     Dosage: SUBCUTANEOUS
     Route: 058
     Dates: start: 20061201
  2. EXENATIDE PEN, DISPOSABLE DEVICE (EXENATIDE PEN) PEN,DISPOSABLE [Concomitant]

REACTIONS (4)
  - DIARRHOEA [None]
  - DRY SKIN [None]
  - ERYTHEMA [None]
  - PRURITUS [None]
